FAERS Safety Report 22080681 (Version 2)
Quarter: 2023Q2

REPORT INFORMATION
  Report Type: Spontaneous
  Country: US (occurrence: US)
  Receive Date: 20230309
  Receipt Date: 20230613
  Transmission Date: 20230722
  Serious: Yes (Hospitalization, Other)
  Sender: FDA-Public Use
  Company Number: US-BRISTOL-MYERS SQUIBB COMPANY-2023-032795

PATIENT
  Age: 51 Year
  Sex: Female

DRUGS (2)
  1. ORENCIA [Suspect]
     Active Substance: ABATACEPT
     Indication: Rheumatoid arthritis
     Dosage: EVERY WEEK
     Route: 058
     Dates: start: 202105
  2. ORENCIA [Suspect]
     Active Substance: ABATACEPT
     Indication: Illness

REACTIONS (4)
  - Pneumonia [Unknown]
  - Sepsis [Unknown]
  - Plantar fasciitis [Unknown]
  - Weight increased [Unknown]
